FAERS Safety Report 7486217-0 (Version None)
Quarter: 2011Q2

REPORT INFORMATION
  Report Type: 
  Country: None (occurrence: None)
  Receive Date: 20110517
  Receipt Date: 20110125
  Transmission Date: 20111010
  Serious: No
  Sender: FDA-Public Use
  Company Number: A0909921A

PATIENT
  Sex: Female

DRUGS (1)
  1. VOTRIENT [Suspect]
     Dosage: 800MG PER DAY
     Route: 065
     Dates: start: 20110120

REACTIONS (5)
  - BREAST PAIN [None]
  - BACK PAIN [None]
  - SENSATION OF FOREIGN BODY [None]
  - VOMITING [None]
  - PAIN IN EXTREMITY [None]
